FAERS Safety Report 5586908-2 (Version None)
Quarter: 2008Q1

REPORT INFORMATION
  Report Type: 
  Country: None (occurrence: None)
  Receive Date: 20080108
  Receipt Date: 20080108
  Transmission Date: 20080703
  Serious: Yes (Death)
  Sender: FDA-Public Use
  Company Number: None

PATIENT
  Age: 19 Year
  Sex: Male
  Weight: 56.6996 kg

DRUGS (1)
  1. METHADONE HCL [Suspect]
     Indication: DRUG DIVERSION

REACTIONS (2)
  - OVERDOSE [None]
  - SELF-MEDICATION [None]
